FAERS Safety Report 26196684 (Version 1)
Quarter: 2025Q4

REPORT INFORMATION
  Report Type: Spontaneous
  Country: CN (occurrence: CN)
  Receive Date: 20251224
  Receipt Date: 20251224
  Transmission Date: 20260118
  Serious: Yes (Other)
  Sender: PFIZER
  Company Number: CN-PFIZER INC-202500248890

PATIENT
  Age: 47 Year
  Sex: Male
  Weight: 73 kg

DRUGS (3)
  1. CEFOPERAZONE SODIUM\SULBACTAM SODIUM [Suspect]
     Active Substance: CEFOPERAZONE SODIUM\SULBACTAM SODIUM
     Indication: Anti-infective therapy
     Dosage: UNK
     Dates: start: 2025
  2. TIGECYCLINE [Suspect]
     Active Substance: TIGECYCLINE
     Indication: Anti-infective therapy
     Dosage: UNK
     Dates: start: 2025
  3. MEROPENEM [Suspect]
     Active Substance: MEROPENEM
     Indication: Anti-infective therapy
     Dosage: UNK
     Dates: start: 2025

REACTIONS (2)
  - Myelosuppression [Unknown]
  - Condition aggravated [Unknown]

NARRATIVE: CASE EVENT DATE: 20251215
